FAERS Safety Report 14614463 (Version 1)
Quarter: 2018Q1

REPORT INFORMATION
  Report Type: Spontaneous
  Country: US (occurrence: US)
  Receive Date: 20180308
  Receipt Date: 20180308
  Transmission Date: 20180509
  Serious: Yes (Disabling)
  Sender: FDA-Public Use
  Company Number: None

PATIENT
  Age: 55 Year
  Sex: Male
  Weight: 87.75 kg

DRUGS (1)
  1. LEVAQUIN [Suspect]
     Active Substance: LEVOFLOXACIN
     Indication: SINUSITIS
     Dosage: ?          QUANTITY:1 TABLET(S);?
     Route: 048
     Dates: start: 20170417, end: 20170418

REACTIONS (6)
  - Musculoskeletal pain [None]
  - Neuropathy peripheral [None]
  - Pain in extremity [None]
  - Myalgia [None]
  - Muscle contractions involuntary [None]
  - Drug ineffective [None]

NARRATIVE: CASE EVENT DATE: 20170417
